FAERS Safety Report 8986463 (Version 1)
Quarter: 2012Q4

REPORT INFORMATION
  Report Type: 
  Country: US (occurrence: US)
  Receive Date: 20121227
  Receipt Date: 20121227
  Transmission Date: 20130627
  Serious: Yes (Other)
  Sender: FDA-Public Use
  Company Number: US-BAYER-2012-125006

PATIENT
  Age: 69 Year
  Sex: Female
  Weight: 58.96 kg

DRUGS (15)
  1. STIVARGA [Suspect]
     Indication: GASTROINTESTINAL STROMAL TUMOR
     Dosage: 120 mg/day
     Route: 048
     Dates: start: 20121110, end: 20121207
  2. STIVARGA [Suspect]
     Indication: METASTASES TO LIVER
  3. EFFEXOR XR [Concomitant]
     Dosage: 37.5 mg
  4. SYNTHROID [Concomitant]
     Dosage: 25 mcg
  5. RITALIN [Concomitant]
     Dosage: 40 mg, BID
  6. LORAZEPAM [Concomitant]
     Dosage: 1 mg
  7. PROCHLORPERAZINE [Concomitant]
     Dosage: 5 mg
  8. LAMICTAL [Concomitant]
     Dosage: 100 mg
  9. ZOFRAN [Concomitant]
     Dosage: 24 mg
  10. VITAMIN B12 [CYANOCOBALAMIN] [Concomitant]
     Dosage: 1000 mcg
  11. OXYCODONE [Concomitant]
     Indication: PAIN
     Dosage: 5 mg, UNK
     Route: 048
  12. KEPPRA [Concomitant]
     Dosage: 250 mg
  13. MAXZIDE [Concomitant]
     Dosage: 25
  14. LISINOPRIL [Concomitant]
     Indication: BLOOD PRESSURE
     Dosage: 2.5 mg/day
  15. MODAFINIL [Concomitant]
     Dosage: 200 mg/day

REACTIONS (12)
  - Urticaria [Recovering/Resolving]
  - Oral discomfort [Recovering/Resolving]
  - Oral pain [Recovering/Resolving]
  - Blood pressure increased [Recovering/Resolving]
  - Nausea [Recovering/Resolving]
  - Vomiting [Recovering/Resolving]
  - Diarrhoea [Recovering/Resolving]
  - Off label use [None]
  - Headache [None]
  - Fatigue [None]
  - Mouth ulceration [None]
  - Vomiting [None]
